FAERS Safety Report 21286711 (Version 1)
Quarter: 2022Q3

REPORT INFORMATION
  Report Type: Spontaneous
  Country: DE (occurrence: DE)
  Receive Date: 20220902
  Receipt Date: 20220902
  Transmission Date: 20221027
  Serious: Yes (Other)
  Sender: FDA-Public Use
  Company Number: DE-ROCHE-2723189

PATIENT
  Age: 64 Year
  Sex: Male

DRUGS (6)
  1. RIBAVIRIN [Suspect]
     Active Substance: RIBAVIRIN
     Indication: Hepatitis E
     Dosage: 800 MILLIGRAM, QD, FURTHER THERAPY WITH RIBAVIRIN FOR THREE MONTHS
  2. RIBAVIRIN [Suspect]
     Active Substance: RIBAVIRIN
     Dosage: 800 MILLIGRAM, QD, THERAPY WITH RIBAVIRIN LASTING FOR THREE MONTHS
  3. BENDAMUSTINE [Suspect]
     Active Substance: BENDAMUSTINE
     Indication: Waldenstrom^s macroglobulinaemia
     Dosage: 6 CYCLES IN COMBINATION WITH MABTHERA
     Dates: start: 2016, end: 201702
  4. BENDAMUSTINE [Suspect]
     Active Substance: BENDAMUSTINE
     Dosage: 8 CYCLES IN COMBINATION WITH MABTHERA
     Dates: start: 2012
  5. MABTHERA [Suspect]
     Active Substance: RITUXIMAB
     Indication: Waldenstrom^s macroglobulinaemia
     Dosage: 8 CYCLES IN COMBINATION WITH BENDAMUSTINE
     Dates: start: 2012
  6. MABTHERA [Suspect]
     Active Substance: RITUXIMAB
     Dosage: 6 CYCLES IN COMBINATION WITH BENDAMUSTINE
     Dates: start: 2016, end: 201702

REACTIONS (10)
  - Lymphopenia [Unknown]
  - Waldenstrom^s macroglobulinaemia recurrent [Recovered/Resolved]
  - Hepatitis E [Recovered/Resolved]
  - Off label use [Unknown]
  - Hypogammaglobulinaemia [Unknown]
  - Suspected transmission of an infectious agent via product [Unknown]
  - Jaundice [Recovered/Resolved]
  - CD4 lymphocytes decreased [Unknown]
  - Fatigue [Recovered/Resolved]
  - CD19 lymphocytes decreased [Unknown]

NARRATIVE: CASE EVENT DATE: 20160101
